FAERS Safety Report 6932005-0 (Version None)
Quarter: 2010Q3

REPORT INFORMATION
  Report Type: 
  Country: None (occurrence: None)
  Receive Date: 20100813
  Receipt Date: 20100526
  Transmission Date: 20110219
  Serious: No
  Sender: FDA-Public Use
  Company Number: 1000014114

PATIENT
  Age: 60 Year
  Sex: Female

DRUGS (9)
  1. SAVELLA [Suspect]
     Indication: MYALGIA
     Dosage: 12.5 MG (12.5 MG, 1 IN 1 D), ORAL
     Route: 048
     Dates: start: 20100403, end: 20100403
  2. SAVELLA [Suspect]
     Indication: NEURALGIA
     Dosage: 12.5 MG (12.5 MG, 1 IN 1 D), ORAL
     Route: 048
     Dates: start: 20100403, end: 20100403
  3. SAVELLA [Suspect]
     Indication: MYALGIA
     Dosage: 25 MG (12.5 MG, 2 IN 1 D), ORAL ; 50 MG (25 MG, 2 IN 1 D), ORAL ;  100 MG (50 MG, 2 IN 1 D), ORAL
     Route: 048
     Dates: start: 20100404, end: 20100404
  4. SAVELLA [Suspect]
     Indication: NEURALGIA
     Dosage: 25 MG (12.5 MG, 2 IN 1 D), ORAL ; 50 MG (25 MG, 2 IN 1 D), ORAL ;  100 MG (50 MG, 2 IN 1 D), ORAL
     Route: 048
     Dates: start: 20100404, end: 20100404
  5. SAVELLA [Suspect]
     Indication: MYALGIA
     Dosage: 25 MG (12.5 MG, 2 IN 1 D), ORAL ; 50 MG (25 MG, 2 IN 1 D), ORAL ;  100 MG (50 MG, 2 IN 1 D), ORAL
     Route: 048
     Dates: start: 20100406, end: 20100409
  6. SAVELLA [Suspect]
     Indication: NEURALGIA
     Dosage: 25 MG (12.5 MG, 2 IN 1 D), ORAL ; 50 MG (25 MG, 2 IN 1 D), ORAL ;  100 MG (50 MG, 2 IN 1 D), ORAL
     Route: 048
     Dates: start: 20100406, end: 20100409
  7. SAVELLA [Suspect]
     Indication: MYALGIA
     Dosage: 25 MG (12.5 MG, 2 IN 1 D), ORAL ; 50 MG (25 MG, 2 IN 1 D), ORAL ;  100 MG (50 MG, 2 IN 1 D), ORAL
     Route: 048
     Dates: start: 20100410, end: 20100424
  8. SAVELLA [Suspect]
     Indication: NEURALGIA
     Dosage: 25 MG (12.5 MG, 2 IN 1 D), ORAL ; 50 MG (25 MG, 2 IN 1 D), ORAL ;  100 MG (50 MG, 2 IN 1 D), ORAL
     Route: 048
     Dates: start: 20100410, end: 20100424
  9. NEURONTIN [Concomitant]

REACTIONS (2)
  - HEADACHE [None]
  - PALPITATIONS [None]
